FAERS Safety Report 8418260-9 (Version None)
Quarter: 2012Q2

REPORT INFORMATION
  Report Type: 
  Country: None (occurrence: None)
  Receive Date: 20120607
  Receipt Date: 20120531
  Transmission Date: 20120825
  Serious: Yes (Other)
  Sender: FDA-Public Use
  Company Number: US-COVIDIEN/TYCO HEALTHCARE/MALLINCKRODT-T201202466

PATIENT
  Sex: Female
  Weight: 44.444 kg

DRUGS (8)
  1. ANAFRANIL CAP [Suspect]
     Indication: OBSESSIVE-COMPULSIVE DISORDER
     Dosage: 225 MG, QD
     Route: 048
     Dates: start: 19900101, end: 20120101
  2. ANAFRANIL CAP [Suspect]
     Dosage: 25 MG, QD
     Dates: start: 20120101, end: 20120501
  3. SYNTHROID [Concomitant]
     Indication: THYROID DISORDER
  4. SYNTHROID [Concomitant]
     Indication: GOITRE
     Dosage: 75 MG, QD
  5. ANAFRANIL CAP [Suspect]
     Dosage: 150 MG, QD
     Dates: start: 20120101, end: 20120101
  6. ALCOHOL [Concomitant]
     Indication: SUBSTANCE USE
     Dosage: 2-4 DRINKS / DAY
  7. ANAFRANIL CAP [Suspect]
     Dosage: 75 MG, QD
     Dates: start: 20120101, end: 20120101
  8. ANAFRANIL CAP [Suspect]
     Dosage: 50 MG, QD
     Dates: start: 20120101, end: 20120101

REACTIONS (8)
  - SALIVARY GLAND ENLARGEMENT [None]
  - MEMORY IMPAIRMENT [None]
  - HEADACHE [None]
  - TACHYCARDIA [None]
  - APHAGIA [None]
  - CARDIAC FLUTTER [None]
  - DEPRESSION [None]
  - DEREALISATION [None]
